FAERS Safety Report 6703243-7 (Version None)
Quarter: 2010Q2

REPORT INFORMATION
  Report Type: 
  Country: None (occurrence: None)
  Receive Date: 20100428
  Receipt Date: 20100413
  Transmission Date: 20101027
  Serious: Yes (Other)
  Sender: FDA-Public Use
  Company Number: 2010000687

PATIENT
  Age: 81 Year
  Sex: Male
  Weight: 47 kg

DRUGS (2)
  1. ERLOTINIB         (ERLOTINIB) (TABLET) (ERLOTINIB) [Suspect]
     Indication: LUNG ADENOCARCINOMA
     Dosage: (50 MG, QD), ORAL; (25 MG, QD), ORAL
     Route: 048
     Dates: start: 20081115, end: 20090104
  2. ERLOTINIB         (ERLOTINIB) (TABLET) (ERLOTINIB) [Suspect]
     Indication: LUNG ADENOCARCINOMA
     Dosage: (50 MG, QD), ORAL; (25 MG, QD), ORAL
     Route: 048
     Dates: start: 20090116, end: 20090129

REACTIONS (4)
  - CONDITION AGGRAVATED [None]
  - GENERAL PHYSICAL CONDITION ABNORMAL [None]
  - LUNG ADENOCARCINOMA [None]
  - PNEUMOTHORAX [None]
